FAERS Safety Report 20836225 (Version 1)
Quarter: 2022Q2

REPORT INFORMATION
  Report Type: Spontaneous
  Country: US (occurrence: US)
  Receive Date: 20220516
  Receipt Date: 20220516
  Transmission Date: 20220721
  Serious: Yes (Other)
  Sender: FDA-Public Use
  Company Number: US-BRISTOL-MYERS SQUIBB COMPANY-2022-037084

PATIENT
  Age: 49 Year
  Sex: Female

DRUGS (2)
  1. TRIAMCINOLONE ACETONIDE [Suspect]
     Active Substance: TRIAMCINOLONE ACETONIDE
     Indication: Alopecia scarring
     Route: 065
  2. CLOBETASONE [Suspect]
     Active Substance: CLOBETASONE
     Indication: Alopecia scarring
     Route: 065

REACTIONS (3)
  - Alopecia [Recovering/Resolving]
  - Dermatophytosis [Recovering/Resolving]
  - Condition aggravated [Recovering/Resolving]
